FAERS Safety Report 19826082 (Version 1)
Quarter: 2021Q3

REPORT INFORMATION
  Report Type: Spontaneous
  Country: US (occurrence: US)
  Receive Date: 20210914
  Receipt Date: 20210914
  Transmission Date: 20211014
  Serious: No
  Sender: FDA-Public Use
  Company Number: None

PATIENT
  Sex: Male

DRUGS (3)
  1. AMBRISENTAN 10MG TAB [Suspect]
     Active Substance: AMBRISENTAN
     Indication: PULMONARY ARTERIAL HYPERTENSION
     Route: 048
  2. TADALAFIL. [Concomitant]
     Active Substance: TADALAFIL
  3. ALYQ [Concomitant]
     Active Substance: TADALAFIL

REACTIONS (5)
  - Therapy interrupted [None]
  - Fatigue [None]
  - Heart rate decreased [None]
  - Heart rate irregular [None]
  - Product supply issue [None]
